FAERS Safety Report 6740456-2 (Version None)
Quarter: 2010Q2

REPORT INFORMATION
  Report Type: 
  Country: None (occurrence: None)
  Receive Date: 20100525
  Receipt Date: 20100413
  Transmission Date: 20101027
  Serious: No
  Sender: FDA-Public Use
  Company Number: US-ALLERGAN-1004826US

PATIENT
  Sex: Female

DRUGS (3)
  1. ACZONE [Suspect]
     Indication: ACNE
     Dosage: UNK
  2. SYNTHROID [Concomitant]
     Indication: HYPOTHYROIDISM
  3. MULTI VITAMIN AND MINERAL + SELENIUM [Concomitant]

REACTIONS (2)
  - ERYTHEMA [None]
  - RASH PUSTULAR [None]
